FAERS Safety Report 8594805-3 (Version None)
Quarter: 2012Q3

REPORT INFORMATION
  Report Type: 
  Country: None (occurrence: None)
  Receive Date: 20120801
  Receipt Date: 20120720
  Transmission Date: 20120928
  Serious: Yes (Other)
  Sender: FDA-Public Use
  Company Number: AUR-APL-2012-02922

PATIENT
  Age: 37 Year
  Sex: Female

DRUGS (5)
  1. LORAZEPAM [Suspect]
     Indication: PRODUCT USED FOR UNKNOWN INDICATION
     Dosage: 1 MG PLUS 2.5 MG BEFORE
  2. RISPERIDONE [Suspect]
     Indication: PRODUCT USED FOR UNKNOWN INDICATION
     Dosage: 3 MG (3 MG, 1 IN 1 D)
  3. VALPROATE SODIUM [Suspect]
     Indication: PRODUCT USED FOR UNKNOWN INDICATION
     Dosage: SEE IMAGE
  4. TRAZODONE HCL [Concomitant]
  5. BIPERIDEN HYDROCHLORIDE TAB [Concomitant]

REACTIONS (9)
  - CONDITION AGGRAVATED [None]
  - HYPERAMMONAEMIC ENCEPHALOPATHY [None]
  - C-REACTIVE PROTEIN INCREASED [None]
  - DRUG INTERACTION [None]
  - HALLUCINATION, VISUAL [None]
  - BIPOLAR I DISORDER [None]
  - AMNESIA [None]
  - TREATMENT NONCOMPLIANCE [None]
  - GLIOSIS [None]
